FAERS Safety Report 10505081 (Version 2)
Quarter: 2014Q4

REPORT INFORMATION
  Report Type: Spontaneous
  Country: US (occurrence: US)
  Receive Date: 20141008
  Receipt Date: 20141008
  Transmission Date: 20150528
  Serious: Yes (Hospitalization, Other)
  Sender: FDA-Public Use
  Company Number: US-SA-2014SA121111

PATIENT
  Age: 74 Year
  Sex: Male
  Weight: 130.5 kg

DRUGS (3)
  1. SEVELAMER CARBONATE. [Suspect]
     Active Substance: SEVELAMER CARBONATE
     Indication: CHRONIC KIDNEY DISEASE
     Route: 065
     Dates: start: 201407
  2. RENVELA [Suspect]
     Active Substance: SEVELAMER CARBONATE
     Indication: CHRONIC KIDNEY DISEASE
     Dosage: ONE TAB AFTER EVERY MEAL
     Route: 048
     Dates: start: 20140508, end: 20140729
  3. RENVELA [Suspect]
     Active Substance: SEVELAMER CARBONATE
     Indication: HYPERPHOSPHATAEMIA
     Dosage: ONE TAB AFTER EVERY MEAL
     Route: 048
     Dates: start: 20140508, end: 20140729

REACTIONS (2)
  - Intestinal obstruction [Recovered/Resolved]
  - Rectal haemorrhage [Recovered/Resolved]

NARRATIVE: CASE EVENT DATE: 20140729
